FAERS Safety Report 6975487-0 (Version None)
Quarter: 2010Q3

REPORT INFORMATION
  Report Type: 
  Country: None (occurrence: None)
  Receive Date: 20100910
  Receipt Date: 20100901
  Transmission Date: 20110219
  Serious: Yes (Hospitalization)
  Sender: FDA-Public Use
  Company Number: US-BIOGENIDEC-2010BI015591

PATIENT
  Age: 49 Year
  Sex: Female

DRUGS (6)
  1. TYSABRI [Suspect]
     Indication: MULTIPLE SCLEROSIS
     Route: 042
     Dates: start: 20090320
  2. LYRICA [Concomitant]
  3. AMITRIPTYLINE HCL [Concomitant]
  4. OMEPRAZOLE [Concomitant]
  5. ALLEGRA [Concomitant]
  6. DOCUSATE SODIUM [Concomitant]

REACTIONS (5)
  - GASTROENTERITIS VIRAL [None]
  - GASTROINTESTINAL DISORDER [None]
  - HYPOTENSION [None]
  - INFECTION [None]
  - MULTIPLE SCLEROSIS RELAPSE [None]
